FAERS Safety Report 8252461-8 (Version None)
Quarter: 2012Q2

REPORT INFORMATION
  Report Type: 
  Country: None (occurrence: None)
  Receive Date: 20120402
  Receipt Date: 20120323
  Transmission Date: 20120825
  Serious: Yes (Disabling, Other)
  Sender: FDA-Public Use
  Company Number: CA-FRI-1000021754

PATIENT
  Sex: Female
  Weight: 80 kg

DRUGS (26)
  1. FLUTICASONE PROPIONATE/SALMETEROL [Concomitant]
     Dosage: 2 DF, 250-50 MCG
     Route: 055
  2. IPRATROPIUM [Concomitant]
     Dosage: 1 INHALATION 4 TIMES DAILY AS REQUIRED
  3. HYDROXYZINE [Concomitant]
     Dosage: 1 CAPSULE 4 TIMES DAILY AS REQUIRED
  4. IRBESARTAN + HYDROCHLOROTHIAZIDE [Concomitant]
     Dosage: 1 DF (12.5-30 MG)
  5. PREDNISONE TAB [Concomitant]
     Dosage: 50 MG
  6. ESOMEPRAZOLE [Concomitant]
     Dosage: 1 DF
  7. LEVOFLOXACIN [Concomitant]
     Dosage: 1 DF
  8. FLUTICASONE PROPIONATE/SALMETEROL [Concomitant]
     Dosage: 1 DF, 500-50 MCG
     Route: 055
  9. AMOXICILLIN/ ACID CLAVULANIC [Concomitant]
     Dosage: 2 DF
  10. SECARIS [Concomitant]
     Dosage: 1 APPLICATION IN EACH NOSTRIL TWICE DAILY AS REQUIRED
     Route: 045
  11. MOMETASONE FUROATE [Concomitant]
     Dosage: 1 APPLICATION TWICE DAILY AS REQUIRED
     Route: 061
  12. ACETAMINOPHEN [Concomitant]
     Dosage: 2 DOSAGE FORMS 4 TIMES DAILY AS REQUIRED
  13. PREDNISONE TAB [Concomitant]
     Dosage: 3 DF
  14. MOXIFLOXACIN [Concomitant]
     Dosage: 1 DF
  15. SERTRALINE HYDROCHLORIDE [Concomitant]
     Dosage: 1 DF
  16. ROFLUMILAST [Suspect]
     Dosage: 0.5 DF
     Route: 048
  17. ROFLUMILAST [Suspect]
     Dosage: 0.25 DF
     Route: 048
  18. VERAPAMIL [Concomitant]
     Dosage: 1 DF
  19. MOMETASONE FUROATE [Concomitant]
     Dosage: 2 INHALATIONS IN EACH NOSTRIL TWICE DAILY
     Route: 055
  20. TIOTROPIUM [Concomitant]
     Dosage: 1 DF
     Route: 055
  21. ROFLUMILAST [Suspect]
     Indication: CHRONIC OBSTRUCTIVE PULMONARY DISEASE
     Dosage: 500 MCG
     Route: 048
     Dates: start: 20110503, end: 20110512
  22. PREDNISONE TAB [Concomitant]
     Dosage: 25 MG
  23. YERBA SANTA [Concomitant]
     Route: 048
  24. ALBUTEROL [Concomitant]
     Dosage: 2 INHALATIONS 4 TIMES DAILY AS REQUIRED
     Route: 055
  25. LORAZEPAM [Concomitant]
     Dosage: 1 DOSAGE FORM TWICE DAILY AS REQUIRED
  26. SYNTHROID [Concomitant]
     Dosage: 1 DF

REACTIONS (6)
  - OEDEMA PERIPHERAL [None]
  - BACK PAIN [None]
  - WRONG TECHNIQUE IN DRUG USAGE PROCESS [None]
  - MONOPLEGIA [None]
  - ABASIA [None]
  - MUSCULAR WEAKNESS [None]
